FAERS Safety Report 15677140 (Version 1)
Quarter: 2018Q4

REPORT INFORMATION
  Report Type: Spontaneous
  Country: US (occurrence: US)
  Receive Date: 20181130
  Receipt Date: 20181130
  Transmission Date: 20190205
  Serious: No
  Sender: FDA-Public Use
  Company Number: US-PFIZER INC-2018492314

PATIENT
  Sex: Female

DRUGS (1)
  1. FLUCONAZOLE. [Suspect]
     Active Substance: FLUCONAZOLE
     Indication: FUNGAL INFECTION
     Dosage: 1 DF, ALTERNATE DAY (THREE PILLS ALTERNATING DAYS)

REACTIONS (4)
  - Product use issue [Unknown]
  - Paraesthesia [Unknown]
  - Burning sensation [Unknown]
  - Drug effect incomplete [Unknown]
